FAERS Safety Report 10073731 (Version 2)
Quarter: 2014Q2

REPORT INFORMATION
  Report Type: Spontaneous
  Country: US (occurrence: US)
  Receive Date: 20140411
  Receipt Date: 20140425
  Transmission Date: 20141212
  Serious: Yes (Hospitalization)
  Sender: FDA-Public Use
  Company Number: US-ABBVIE-14P-163-1225245-00

PATIENT
  Sex: Female

DRUGS (4)
  1. VICODIN [Suspect]
     Indication: PAIN
  2. AMPYRA [Suspect]
     Indication: MULTIPLE SCLEROSIS
     Dates: start: 20111014, end: 201402
  3. MORPHINE [Suspect]
     Indication: PAIN
  4. AVONEX [Suspect]
     Indication: PRODUCT USED FOR UNKNOWN INDICATION

REACTIONS (2)
  - Joint swelling [Not Recovered/Not Resolved]
  - Oedema peripheral [Not Recovered/Not Resolved]
